FAERS Safety Report 7216957-X (Version None)
Quarter: 2011Q1

REPORT INFORMATION
  Report Type: 
  Country: None (occurrence: None)
  Receive Date: 20110110
  Receipt Date: 20101230
  Transmission Date: 20110831
  Serious: Yes (Hospitalization)
  Sender: FDA-Public Use
  Company Number: JP-TEVA-261087USA

PATIENT
  Age: 8 Year
  Sex: Male
  Weight: 22 kg

DRUGS (3)
  1. DIMETICONE [Suspect]
     Indication: PRODUCT USED FOR UNKNOWN INDICATION
     Route: 048
     Dates: start: 20100122
  2. MEPENZOLATE BROMIDE [Suspect]
     Indication: PRODUCT USED FOR UNKNOWN INDICATION
     Dosage: 1.5 DF
     Route: 048
     Dates: start: 20100122
  3. PIMOZIDE TABLETS [Suspect]
     Indication: HYPERKINESIA
     Route: 048
     Dates: start: 20101212

REACTIONS (2)
  - DYSTONIA [None]
  - DROOLING [None]
